FAERS Safety Report 11039287 (Version 6)
Quarter: 2016Q3

REPORT INFORMATION
  Report Type: Spontaneous
  Country: US (occurrence: US)
  Receive Date: 20150416
  Receipt Date: 20160706
  Transmission Date: 20161109
  Serious: Yes (Other)
  Sender: FDA-Public Use
  Company Number: US-009507513-1504USA017087

PATIENT
  Sex: Male

DRUGS (2)
  1. PROPECIA [Suspect]
     Active Substance: FINASTERIDE
     Indication: ANDROGENETIC ALOPECIA
     Dosage: 1 MG, QD
     Route: 048
     Dates: start: 2008, end: 201007
  2. PROPECIA [Suspect]
     Active Substance: FINASTERIDE
     Dosage: 1 MG, UNKNOWN
     Route: 048
     Dates: start: 20100730, end: 20110924

REACTIONS (30)
  - Male sexual dysfunction [Not Recovered/Not Resolved]
  - Emotional distress [Not Recovered/Not Resolved]
  - Increased tendency to bruise [Unknown]
  - Peyronie^s disease [Unknown]
  - Erectile dysfunction [Not Recovered/Not Resolved]
  - Sinusitis [Unknown]
  - Nocturia [Unknown]
  - Cataract [Unknown]
  - Arthritis [Unknown]
  - Acne [Unknown]
  - Arthralgia [Unknown]
  - Sinus operation [Unknown]
  - Hypertension [Not Recovered/Not Resolved]
  - Bone pain [Unknown]
  - Prostatomegaly [Not Recovered/Not Resolved]
  - Myalgia [Unknown]
  - Anxiety [Not Recovered/Not Resolved]
  - Haematuria [Not Recovered/Not Resolved]
  - Testicular failure [Unknown]
  - Tonsillectomy [Unknown]
  - Face injury [Unknown]
  - Depression [Not Recovered/Not Resolved]
  - Libido decreased [Unknown]
  - Back pain [Unknown]
  - Varicose vein [Unknown]
  - Seasonal allergy [Not Recovered/Not Resolved]
  - Neoplasm skin [Unknown]
  - Road traffic accident [Unknown]
  - Joint stiffness [Unknown]
  - Chest pain [Unknown]

NARRATIVE: CASE EVENT DATE: 2008
